FAERS Safety Report 4753597-6 (Version None)
Quarter: 2005Q3

REPORT INFORMATION
  Report Type: 
  Country: None (occurrence: None)
  Receive Date: 20050826
  Receipt Date: 20040803
  Transmission Date: 20060218
  Serious: No
  Sender: FDA-Public Use
  Company Number: US-GLAXOSMITHKLINE-A0520766A

PATIENT
  Sex: Female

DRUGS (2)
  1. BECONASE [Suspect]
     Dosage: 2SPR PER DAY
     Route: 045
     Dates: start: 20040701
  2. METOPROLOL [Concomitant]

REACTIONS (3)
  - DYSPNOEA [None]
  - HEART RATE INCREASED [None]
  - MIGRAINE [None]
